FAERS Safety Report 10009364 (Version 1)
Quarter: 2014Q1

REPORT INFORMATION
  Report Type: Spontaneous
  Country: IT (occurrence: IT)
  Receive Date: 20140313
  Receipt Date: 20140313
  Transmission Date: 20141002
  Serious: Yes (Hospitalization)
  Sender: FDA-Public Use
  Company Number: PHHY2014IT029946

PATIENT
  Age: 87 Year
  Sex: Male

DRUGS (10)
  1. ACETYLSALICYLIC ACID [Suspect]
     Indication: ATRIAL FIBRILLATION
     Dosage: 100 MG, QD
     Route: 048
  2. TRENTAL [Concomitant]
     Dosage: 1200 MG, UNK
  3. RETACRIT [Concomitant]
     Dosage: 40000 IU, UNK
  4. LASIX [Concomitant]
     Dosage: 1 DF, UNK
     Route: 048
  5. TRIATEC [Concomitant]
     Dosage: 2.5 MG, UNK
     Route: 048
  6. FOLIDEX [Concomitant]
     Dosage: UNK
  7. EPINITRIL [Concomitant]
     Dosage: 1 DF, UNK
     Route: 062
  8. DILATREND [Concomitant]
     Dosage: 3.125 MG, UNK
  9. ALMARYTM [Concomitant]
     Dosage: 100 MG, UNK
     Route: 048
  10. ALLOPURINOL [Concomitant]
     Dosage: 300 MG, UNK
     Route: 048

REACTIONS (3)
  - Anaemia [Recovered/Resolved]
  - Epistaxis [Recovered/Resolved]
  - Rectal haemorrhage [Recovered/Resolved]
